FAERS Safety Report 5649004-1 (Version None)
Quarter: 2008Q1

REPORT INFORMATION
  Report Type: 
  Country: None (occurrence: None)
  Receive Date: 20080304
  Receipt Date: 20080227
  Transmission Date: 20080703
  Serious: Yes (Other)
  Sender: FDA-Public Use
  Company Number: DE-MERCK-0802DEU00057

PATIENT
  Age: 38 Year
  Sex: Female

DRUGS (6)
  1. ISENTRESS [Suspect]
     Indication: HIV INFECTION
     Route: 048
     Dates: start: 20080110, end: 20080126
  2. ISENTRESS [Suspect]
     Route: 048
     Dates: start: 20080208, end: 20080218
  3. COMBIVIR [Concomitant]
     Indication: HIV INFECTION
     Route: 048
     Dates: start: 20060616, end: 20080126
  4. COMBIVIR [Concomitant]
     Route: 048
     Dates: start: 20080208, end: 20080218
  5. INVIRASE [Concomitant]
     Indication: HIV INFECTION
     Route: 048
     Dates: end: 20080109
  6. NORVIR [Concomitant]
     Indication: HIV INFECTION
     Route: 048
     Dates: end: 20080109

REACTIONS (5)
  - ABDOMINAL PAIN UPPER [None]
  - ABORTION EARLY [None]
  - DRUG EXPOSURE DURING PREGNANCY [None]
  - INFLUENZA LIKE ILLNESS [None]
  - PYREXIA [None]
